FAERS Safety Report 12281791 (Version 1)
Quarter: 2016Q2

REPORT INFORMATION
  Report Type: Spontaneous
  Country: US (occurrence: US)
  Receive Date: 20160419
  Receipt Date: 20160419
  Transmission Date: 20160815
  Serious: No
  Sender: FDA-Public Use
  Company Number: US-TEVA-642456USA

PATIENT
  Age: 46 Year
  Sex: Female

DRUGS (1)
  1. ZECUITY [Suspect]
     Active Substance: SUMATRIPTAN SUCCINATE
     Indication: MIGRAINE
     Dosage: 6.5 MG / 4 HOURS
     Route: 062
     Dates: start: 20160304, end: 20160304

REACTIONS (7)
  - Application site erythema [Recovering/Resolving]
  - Dermatitis contact [Recovering/Resolving]
  - Drug effect incomplete [Unknown]
  - Application site vesicles [Recovered/Resolved]
  - Device battery issue [Unknown]
  - Application site pruritus [Recovering/Resolving]
  - Application site discolouration [Recovering/Resolving]

NARRATIVE: CASE EVENT DATE: 20160304
